FAERS Safety Report 8002430-8 (Version None)
Quarter: 2011Q4

REPORT INFORMATION
  Report Type: 
  Country: None (occurrence: None)
  Receive Date: 20111220
  Receipt Date: 20111206
  Transmission Date: 20120403
  Serious: Yes (Other)
  Sender: FDA-Public Use
  Company Number: 1117371

PATIENT
  Age: 25 Year
  Sex: Male

DRUGS (5)
  1. PROPOFOL [Suspect]
     Indication: SEDATION
     Dosage: 100 MG, ONCE, INTRAVENOUS (NOT OTHERWISE SPECIFIED)
     Route: 042
     Dates: start: 20111004, end: 20111004
  2. FENTANYL CITRATE [Concomitant]
  3. MIDAZOLAM INJECTION USP (MIDAZOLAM) [Concomitant]
  4. KETAMIN HCL INJ., USP 10ML MULTI DOSE FLIPTOP VIAL, 50MG/ML, CS/100 (K [Concomitant]
  5. DECADRON [Concomitant]

REACTIONS (6)
  - PYREXIA [None]
  - ENDOCARDITIS [None]
  - COMMUNITY ACQUIRED INFECTION [None]
  - STAPHYLOCOCCAL INFECTION [None]
  - NAUSEA [None]
  - VOMITING [None]
